FAERS Safety Report 8908495 (Version 3)
Quarter: 2013Q1

REPORT INFORMATION
  Report Type: Spontaneous
  Country: US (occurrence: US)
  Receive Date: 20121114
  Receipt Date: 20130118
  Transmission Date: 20140127
  Serious: No
  Sender: FDA-Public Use
  Company Number: US-PFIZER INC-2012280184

PATIENT
  Age: 47 Year
  Sex: Male
  Weight: 79.8 kg

DRUGS (7)
  1. VIAGRA [Suspect]
     Indication: ERECTILE DYSFUNCTION
     Dosage: 50 MG, AS NEEDED
     Route: 048
     Dates: start: 20121102
  2. VIAGRA [Suspect]
     Dosage: 100 MG, TAKE AS DIRECTED
  3. PERCOCET [Concomitant]
     Dosage: UNK
  4. FLEXERIL [Concomitant]
     Dosage: UNK
  5. BACLOFEN [Concomitant]
     Dosage: UNK
  6. VALIUM [Concomitant]
     Dosage: UNK
  7. SOMA [Concomitant]
     Dosage: UNK

REACTIONS (1)
  - Malaise [Unknown]
